FAERS Safety Report 6933816-8 (Version None)
Quarter: 2010Q3

REPORT INFORMATION
  Report Type: 
  Country: None (occurrence: None)
  Receive Date: 20100820
  Receipt Date: 20100809
  Transmission Date: 20110219
  Serious: Yes (Other)
  Sender: FDA-Public Use
  Company Number: US-PFIZER INC-2010100712

PATIENT
  Sex: Female
  Weight: 79.365 kg

DRUGS (4)
  1. NEURONTIN [Suspect]
     Indication: NERVE INJURY
     Dosage: 300 MG, 2X/DAY
     Route: 048
     Dates: start: 20090401, end: 20100101
  2. CHANTIX [Suspect]
     Indication: SMOKING CESSATION THERAPY
     Dosage: UNK
     Route: 048
  3. NORCO [Concomitant]
     Indication: PAIN
     Dosage: 10/325 EVERY 4-6 HOURS
     Route: 048
  4. DIAZEPAM [Concomitant]
     Indication: PAIN
     Dosage: 5 MG, 3X/DAY
     Route: 048
     Dates: start: 20100101

REACTIONS (3)
  - DRUG INEFFECTIVE [None]
  - FALL [None]
  - HYPOAESTHESIA [None]
